FAERS Safety Report 17715706 (Version 8)
Quarter: 2022Q3

REPORT INFORMATION
  Report Type: Report from Study
  Country: JP (occurrence: JP)
  Receive Date: 20200427
  Receipt Date: 20220816
  Transmission Date: 20221027
  Serious: Yes (Hospitalization, Other)
  Sender: FDA-Public Use
  Company Number: JP-ONO-2020JP010074

PATIENT
  Age: 70 Year
  Sex: Female
  Weight: 60.5 kg

DRUGS (56)
  1. ETELCALCETIDE [Suspect]
     Active Substance: ETELCALCETIDE
     Indication: Hyperparathyroidism secondary
     Dosage: 5 MG, Q56H
     Route: 010
     Dates: start: 20190608, end: 20190629
  2. ETELCALCETIDE [Suspect]
     Active Substance: ETELCALCETIDE
     Dosage: 10 MG, Q56H
     Route: 010
     Dates: start: 20190702, end: 20190706
  3. ETELCALCETIDE [Suspect]
     Active Substance: ETELCALCETIDE
     Dosage: 5 MG, Q56H
     Route: 010
     Dates: start: 20190708, end: 20190711
  4. ETELCALCETIDE [Suspect]
     Active Substance: ETELCALCETIDE
     Dosage: 10 MG, Q56H
     Route: 010
     Dates: start: 20190713, end: 20190917
  5. DARBEPOETIN ALFA [Concomitant]
     Active Substance: DARBEPOETIN ALFA
     Dosage: 20 MICROGRAM, QWK
     Route: 065
     Dates: start: 20200111, end: 20200204
  6. DARBEPOETIN ALFA [Concomitant]
     Active Substance: DARBEPOETIN ALFA
     Dosage: 20 MICROGRAM, QWK
     Route: 065
     Dates: start: 20200317, end: 20200317
  7. DARBEPOETIN ALFA [Concomitant]
     Active Substance: DARBEPOETIN ALFA
     Dosage: 40 MICROGRAM, QWK
     Route: 065
     Dates: start: 20200319, end: 20200511
  8. DARBEPOETIN ALFA [Concomitant]
     Active Substance: DARBEPOETIN ALFA
     Dosage: 20 MICROGRAM, QWK
     Route: 065
     Dates: start: 20200513, end: 20200525
  9. ROCALTROL [Concomitant]
     Active Substance: CALCITRIOL
     Dosage: 0.5 MICROGRAM, Q56H
     Route: 065
     Dates: end: 20190727
  10. ROCALTROL [Concomitant]
     Active Substance: CALCITRIOL
     Dosage: 1 MICROGRAM, Q56H
     Route: 065
     Dates: start: 20190730, end: 20190907
  11. BIXALOMER [Concomitant]
     Active Substance: BIXALOMER
     Dosage: 750 MG, EVERYDAY
     Route: 048
     Dates: end: 20190924
  12. BIXALOMER [Concomitant]
     Active Substance: BIXALOMER
     Dosage: 750 MG, EVERYDAY
     Route: 048
     Dates: start: 20200423, end: 20200624
  13. BIXALOMER [Concomitant]
     Active Substance: BIXALOMER
     Dosage: 1500 MG, EVERYDAY
     Route: 048
     Dates: start: 20200625, end: 20210713
  14. BIXALOMER [Concomitant]
     Active Substance: BIXALOMER
     Dosage: 750 MG, EVERYDAY
     Dates: start: 20210714, end: 20211222
  15. BIXALOMER [Concomitant]
     Active Substance: BIXALOMER
     Dosage: 750 MG, EVERYDAY
     Dates: start: 20220127
  16. CALCIUM CARBONATE [Concomitant]
     Active Substance: CALCIUM CARBONATE
     Dosage: 1000 MG, EVERYDAY
     Route: 048
     Dates: end: 20190823
  17. CALCIUM CARBONATE [Concomitant]
     Active Substance: CALCIUM CARBONATE
     Dosage: 1500 MG, EVERYDAY
     Route: 048
     Dates: start: 20190824, end: 20191008
  18. CALCIUM CARBONATE [Concomitant]
     Active Substance: CALCIUM CARBONATE
     Dosage: 500 MG, EVERYDAY
     Route: 048
     Dates: start: 20191009, end: 20191111
  19. CALCIUM CARBONATE [Concomitant]
     Active Substance: CALCIUM CARBONATE
     Dosage: 500 MG, EVERYDAY
     Route: 048
     Dates: start: 20210227
  20. ERYTHROPOIETIN [Concomitant]
     Active Substance: ERYTHROPOIETIN
     Dosage: 7500 IU, QW
     Route: 065
     Dates: end: 20190410
  21. ERYTHROPOIETIN [Concomitant]
     Active Substance: ERYTHROPOIETIN
     Dosage: 4500 IU, QW
     Route: 065
     Dates: start: 20190411, end: 20190806
  22. ERYTHROPOIETIN [Concomitant]
     Active Substance: ERYTHROPOIETIN
     Dosage: 6000 IU, QW
     Route: 065
     Dates: start: 20190808, end: 20191112
  23. ERYTHROPOIETIN [Concomitant]
     Active Substance: ERYTHROPOIETIN
     Dosage: 7500 IU, QW
     Route: 065
     Dates: start: 20191114, end: 20191126
  24. ERYTHROPOIETIN [Concomitant]
     Active Substance: ERYTHROPOIETIN
     Dosage: 9000 IU, QW
     Route: 065
     Dates: start: 20191128, end: 20200609
  25. ERYTHROPOIETIN [Concomitant]
     Active Substance: ERYTHROPOIETIN
     Dosage: 6000 IU, QW
     Route: 065
     Dates: start: 20200611, end: 20200707
  26. ERYTHROPOIETIN [Concomitant]
     Active Substance: ERYTHROPOIETIN
     Dosage: 4500 IU, QW
     Route: 065
     Dates: start: 20200709, end: 20200915
  27. ERYTHROPOIETIN [Concomitant]
     Active Substance: ERYTHROPOIETIN
     Dosage: 6000 IU, QW
     Route: 065
     Dates: start: 20200917, end: 20210323
  28. ERYTHROPOIETIN [Concomitant]
     Active Substance: ERYTHROPOIETIN
     Dosage: 4500 IU, QW
     Route: 065
     Dates: start: 20210325, end: 20210608
  29. ERYTHROPOIETIN [Concomitant]
     Active Substance: ERYTHROPOIETIN
     Dosage: 7500 IU, QW
     Route: 065
     Dates: start: 20210610, end: 20211012
  30. ERYTHROPOIETIN [Concomitant]
     Active Substance: ERYTHROPOIETIN
     Dosage: 4500 IU, QW
     Route: 065
     Dates: start: 20211014, end: 20211026
  31. ERYTHROPOIETIN [Concomitant]
     Active Substance: ERYTHROPOIETIN
     Dosage: 2250 IU, QW
     Route: 065
     Dates: start: 20211028, end: 20211207
  32. ERYTHROPOIETIN [Concomitant]
     Active Substance: ERYTHROPOIETIN
     Dosage: 3750 IU, QW
     Route: 065
     Dates: start: 20211209, end: 20220308
  33. ERYTHROPOIETIN [Concomitant]
     Active Substance: ERYTHROPOIETIN
     Dosage: 7500 IU, QW
     Route: 065
     Dates: start: 20220310
  34. ALFAROL [Concomitant]
     Active Substance: ALFACALCIDOL
     Dosage: 0.5 MICROGRAM, QD
     Route: 048
     Dates: start: 20190910, end: 20191113
  35. Fesin [Concomitant]
     Dosage: 80 MG, QW
     Route: 042
     Dates: start: 20190410, end: 20190420
  36. Fesin [Concomitant]
     Dosage: 80 MG, QW
     Route: 042
     Dates: start: 20190518, end: 20190528
  37. Fesin [Concomitant]
     Dosage: 80 MG, QW
     Route: 042
     Dates: start: 20190810, end: 20190820
  38. Fesin [Concomitant]
     Dosage: 80 MG, QW
     Route: 042
     Dates: start: 20191228, end: 20200107
  39. Fesin [Concomitant]
     Dosage: 80 MG, QW
     Route: 042
     Dates: start: 20200208, end: 20200218
  40. Fesin [Concomitant]
     Dosage: 80 MG, QW
     Route: 042
     Dates: start: 20200317, end: 20200327
  41. Fesin [Concomitant]
     Dosage: 80 MG, QW
     Route: 042
     Dates: start: 20200411, end: 20200421
  42. Fesin [Concomitant]
     Dosage: 80 MG, QW
     Route: 042
     Dates: start: 20200512, end: 20200522
  43. Fesin [Concomitant]
     Dosage: 80 MG, QW
     Route: 042
     Dates: start: 20200613, end: 20200623
  44. Fesin [Concomitant]
     Dosage: 80 MG, QW
     Route: 042
     Dates: start: 20200919, end: 20200929
  45. Fesin [Concomitant]
     Dosage: 80 MG, QW
     Route: 042
     Dates: start: 20201114, end: 20201124
  46. Fesin [Concomitant]
     Dosage: 80 MG, QW
     Route: 042
     Dates: start: 20210109, end: 20210119
  47. Fesin [Concomitant]
     Dosage: 80 MG, QW
     Route: 042
     Dates: start: 20210327, end: 20210406
  48. Fesin [Concomitant]
     Dosage: 80 MG, QW
     Route: 042
     Dates: start: 20210626, end: 20210706
  49. Fesin [Concomitant]
     Dosage: 80 MG, QW
     Route: 042
     Dates: start: 20210911, end: 20210921
  50. Fesin [Concomitant]
     Dosage: 80 MG, QW
     Route: 042
     Dates: start: 20211016, end: 20211026
  51. Fesin [Concomitant]
     Dosage: 80 MG, QW
     Route: 042
     Dates: start: 20220312, end: 20220322
  52. Fesin [Concomitant]
     Dosage: 80 MG, QW
     Route: 042
     Dates: start: 20220528, end: 20220614
  53. EVOCALCET [Concomitant]
     Active Substance: EVOCALCET
     Dosage: 2 MG, EVERYDAY
     Route: 048
     Dates: start: 20190430, end: 20190605
  54. EVOCALCET [Concomitant]
     Active Substance: EVOCALCET
     Dosage: 1 MG, EVERYDAY
     Route: 048
     Dates: start: 20191130, end: 20200129
  55. EVOCALCET [Concomitant]
     Active Substance: EVOCALCET
     Dosage: 2 MG, EVERYDAY
     Route: 048
     Dates: start: 20200130, end: 20210217
  56. EVOCALCET [Concomitant]
     Active Substance: EVOCALCET
     Dosage: 4 MG, EVERYDAY
     Route: 048
     Dates: start: 20210218

REACTIONS (8)
  - Gastric ulcer haemorrhage [Recovered/Resolved]
  - Eczema [Recovered/Resolved]
  - Nasopharyngitis [Recovered/Resolved]
  - Nasopharyngitis [Recovered/Resolved]
  - Nasopharyngitis [Recovered/Resolved]
  - Nasopharyngitis [Recovered/Resolved]
  - Diarrhoea [Recovered/Resolved]
  - Diarrhoea [Recovered/Resolved]

NARRATIVE: CASE EVENT DATE: 20190718
